FAERS Safety Report 21035947 (Version 2)
Quarter: 2022Q3

REPORT INFORMATION
  Report Type: Spontaneous
  Country: US (occurrence: US)
  Receive Date: 20220701
  Receipt Date: 20220806
  Transmission Date: 20221027
  Serious: No
  Sender: FDA-Public Use
  Company Number: US-SA-SAC20220629002491

PATIENT
  Age: 34 Year
  Sex: Female
  Weight: 121 kg

DRUGS (3)
  1. DUPIXENT [Suspect]
     Active Substance: DUPILUMAB
     Indication: Dermatitis atopic
     Dosage: 300 MG QOW
     Route: 058
     Dates: start: 20210625
  2. TRIAMCINOLONE [Concomitant]
     Active Substance: TRIAMCINOLONE
     Indication: Dermatitis atopic
     Dosage: 0.1% CREAM BD/PRN VIA TOPICAL ROUTE
     Dates: start: 20220523
  3. MUPIROCIN [Concomitant]
     Active Substance: MUPIROCIN
     Indication: Impetigo
     Dosage: MUPIROCIN FOR IMPETIGO 2% CREAM STARTED ON 23-MAY-2022 AND STOPPED ON 28-MAY-2022
     Dates: start: 20220523, end: 20220528

REACTIONS (1)
  - Oral herpes [Recovered/Resolved]

NARRATIVE: CASE EVENT DATE: 20220620
